FAERS Safety Report 25761374 (Version 1)
Quarter: 2025Q3

REPORT INFORMATION
  Report Type: Spontaneous
  Country: CN (occurrence: CN)
  Receive Date: 20250904
  Receipt Date: 20250904
  Transmission Date: 20251021
  Serious: Yes (Other)
  Sender: PFIZER
  Company Number: CN-PFIZER INC-PV202500105725

PATIENT
  Age: 29 Year
  Sex: Female
  Weight: 50 kg

DRUGS (2)
  1. CARBOPROST TROMETHAMINE [Suspect]
     Active Substance: CARBOPROST TROMETHAMINE
     Indication: Postpartum haemorrhage
     Route: 030
     Dates: start: 20250819, end: 20250819
  2. MISOPROSTOL [Suspect]
     Active Substance: MISOPROSTOL
     Indication: Postpartum haemorrhage
     Dosage: 0.4 MG, 1X/DAY
     Route: 060
     Dates: start: 20250819, end: 20250819

REACTIONS (3)
  - Chills [Recovered/Resolved]
  - Cyanosis [Recovered/Resolved]
  - Body temperature increased [Recovered/Resolved]

NARRATIVE: CASE EVENT DATE: 20250819
